FAERS Safety Report 5875874-8 (Version None)
Quarter: 2008Q3

REPORT INFORMATION
  Report Type: 
  Country: None (occurrence: None)
  Receive Date: 20080905
  Receipt Date: 20080815
  Transmission Date: 20090109
  Serious: Yes (Hospitalization, Other)
  Sender: FDA-Public Use
  Company Number: 920#8#2008-00020

PATIENT
  Age: 29 Year
  Sex: Female

DRUGS (2)
  1. NIFEDIPINE [Suspect]
     Indication: PREMATURE LABOUR
     Dosage: 40MG, 3 IN 1 D, ORAL
     Route: 048
  2. RITODRINE HYDROCHLORIDE [Suspect]
     Indication: PREMATURE LABOUR
     Dosage: INTRAVENOUS
     Route: 042

REACTIONS (4)
  - CAESAREAN SECTION [None]
  - DRUG EXPOSURE DURING PREGNANCY [None]
  - HYPOTENSION [None]
  - MYOCARDIAL INFARCTION [None]
